FAERS Safety Report 4600766-1 (Version None)
Quarter: 2005Q1

REPORT INFORMATION
  Report Type: 
  Country: None (occurrence: None)
  Receive Date: 20050127
  Receipt Date: 20041115
  Transmission Date: 20050727
  Serious: No
  Sender: FDA-Public Use
  Company Number: USA041183637

PATIENT
  Age: 38 Year
  Sex: Male
  Weight: 70 kg

DRUGS (8)
  1. STRATTERA [Suspect]
     Indication: ATTENTION DEFICIT/HYPERACTIVITY DISORDER
     Dosage: 40 MG DAY
     Dates: start: 20041104
  2. OXYCODONE AND ACETAMINOPHEN [Concomitant]
  3. NAPROSYN (NAPROXEN MEPHA) [Concomitant]
  4. SKELAXIN [Concomitant]
  5. ZYRTEC [Concomitant]
  6. ATENOLOL [Concomitant]
  7. LEXAPRO [Concomitant]
  8. VIAGRA [Concomitant]

REACTIONS (3)
  - BALANCE DISORDER [None]
  - CHEST DISCOMFORT [None]
  - EJACULATION FAILURE [None]
